FAERS Safety Report 8904633 (Version 1)
Quarter: 2012Q4

REPORT INFORMATION
  Report Type: 
  Country: US (occurrence: US)
  Receive Date: 20121113
  Receipt Date: 20121113
  Transmission Date: 20130627
  Serious: No
  Sender: FDA-Public Use
  Company Number: US-PFIZER INC-2012281433

PATIENT
  Age: 41 Year
  Sex: Male
  Weight: 86.2 kg

DRUGS (3)
  1. PRAZOSIN HCL [Suspect]
     Indication: POST-TRAUMATIC STRESS DISORDER
     Dosage: 6 mg daily
  2. SOLODYN [Interacting]
     Indication: ACNE
     Dosage: 105 mg, 1x/day
     Route: 048
     Dates: start: 20121012, end: 20121015
  3. SOLODYN [Interacting]
     Dosage: 80 mg, 1x/day
     Route: 048
     Dates: start: 20121022, end: 20121022

REACTIONS (4)
  - Off label use [Unknown]
  - Nightmare [Unknown]
  - Drug ineffective [Unknown]
  - Inhibitory drug interaction [Unknown]
